FAERS Safety Report 25245176 (Version 4)
Quarter: 2025Q2

REPORT INFORMATION
  Report Type: Spontaneous
  Country: US (occurrence: US)
  Receive Date: 20250428
  Receipt Date: 20250602
  Transmission Date: 20250716
  Serious: No
  Sender: PFIZER
  Company Number: US-PFIZER INC-202500084032

PATIENT
  Age: 64 Year
  Sex: Male

DRUGS (1)
  1. GENOTROPIN [Suspect]
     Active Substance: SOMATROPIN
     Dosage: 1.6MGS - 7 DAYS PER WEEK - SUB Q
     Route: 058

REACTIONS (3)
  - Device dispensing error [Unknown]
  - Product preparation issue [Unknown]
  - Drug administered in wrong device [Unknown]
